FAERS Safety Report 6539899-1 (Version None)
Quarter: 2010Q1

REPORT INFORMATION
  Report Type: 
  Country: None (occurrence: None)
  Receive Date: 20100113
  Receipt Date: 20090508
  Transmission Date: 20100710
  Serious: Yes (Hospitalization)
  Sender: FDA-Public Use
  Company Number: 09-000747

PATIENT
  Age: 35 Year
  Sex: Female

DRUGS (1)
  1. FEMCON FE [Suspect]
     Indication: CONTRACEPTION
     Dosage: 0.4 MG/35MCG, QD, ORAL
     Route: 048

REACTIONS (1)
  - PULMONARY EMBOLISM [None]
